FAERS Safety Report 7928428-3 (Version None)
Quarter: 2011Q4

REPORT INFORMATION
  Report Type: 
  Country: None (occurrence: None)
  Receive Date: 20111118
  Receipt Date: 20111107
  Transmission Date: 20120403
  Serious: Yes (Hospitalization)
  Sender: FDA-Public Use
  Company Number: PHEH2011US03693

PATIENT
  Sex: Male
  Weight: 92.7 kg

DRUGS (2)
  1. LORAZEPAM [Concomitant]
  2. GILENYA [Suspect]
     Indication: MULTIPLE SCLEROSIS
     Dosage: 0.5 MG, DAILY
     Route: 048
     Dates: end: 20110802

REACTIONS (1)
  - ENCEPHALOPATHY [None]
